FAERS Safety Report 18508305 (Version 1)
Quarter: 2020Q4

REPORT INFORMATION
  Report Type: Spontaneous
  Country: IN (occurrence: IN)
  Receive Date: 20201116
  Receipt Date: 20201116
  Transmission Date: 20210114
  Serious: Yes (Hospitalization)
  Sender: FDA-Public Use
  Company Number: IN-ANIPHARMA-2020-IN-000183

PATIENT
  Age: 60 Year
  Sex: Male

DRUGS (12)
  1. PIOGLITAZONE. [Concomitant]
     Active Substance: PIOGLITAZONE
     Dosage: 50 MG ONCE DAILY
  2. ESCITALOPRAM [Suspect]
     Active Substance: ESCITALOPRAM OXALATE
     Indication: DEPRESSION
     Dosage: 10 MG
  3. REGULAR INSULIN [Concomitant]
     Active Substance: INSULIN NOS
     Dosage: 16 UNITS AND 20 UNITS ONCE DAILY
     Route: 058
  4. ECOSPIRIN [Concomitant]
     Active Substance: ASPIRIN
     Dosage: 75 MG ONCE DAILY
  5. METFORMIN [Concomitant]
     Active Substance: METFORMIN HYDROCHLORIDE
     Dosage: 1 GRAM TWICE DAILY
  6. METOPROLOL. [Suspect]
     Active Substance: METOPROLOL
     Indication: PRODUCT USED FOR UNKNOWN INDICATION
     Dosage: 25 MG ONCE DAILY
  7. CLONAZEPAM. [Suspect]
     Active Substance: CLONAZEPAM
     Indication: DEPRESSION
     Dosage: 0.5 MG
  8. ALPRAZOLAM (NON-SPECIFIC) [Suspect]
     Active Substance: ALPRAZOLAM
     Indication: ANXIETY
     Dosage: 0.5 MG
  9. ATORVASTATIN [Concomitant]
     Active Substance: ATORVASTATIN
     Dosage: 10 MG AT NIGHT
  10. PAROXETINE. [Suspect]
     Active Substance: PAROXETINE
     Indication: ANXIETY
     Dosage: 20 MG
  11. OLMESARTAN [Concomitant]
     Active Substance: OLMESARTAN
     Dosage: 10 MG TWICE DAILY
  12. PANTOPRAZOLE [Suspect]
     Active Substance: PANTOPRAZOLE
     Indication: PRODUCT USED FOR UNKNOWN INDICATION
     Dosage: 40 MG ONCE DAILY

REACTIONS (1)
  - Serotonin syndrome [Recovered/Resolved]
